FAERS Safety Report 10556406 (Version 2)
Quarter: 2014Q4

REPORT INFORMATION
  Report Type: Report from Study
  Country: TW (occurrence: TW)
  Receive Date: 20141031
  Receipt Date: 20141031
  Transmission Date: 20150529
  Serious: Yes (Death, Other)
  Sender: FDA-Public Use
  Company Number: TW-TEVA-2010003989

PATIENT
  Age: 81 Year
  Sex: Male

DRUGS (9)
  1. TREANDA [Suspect]
     Active Substance: BENDAMUSTINE HYDROCHLORIDE
     Indication: B-CELL LYMPHOMA
     Route: 042
     Dates: start: 20100408, end: 20100409
  2. CHLORHEXIDINE AND CETRIMIDE [Concomitant]
     Indication: PROPHYLAXIS
     Dosage: 200 ML DAILY; 2 / FORMULATION UNKNOWN / 200 ML / 1 DAY
     Route: 055
     Dates: start: 20100708
  3. TREANDA [Suspect]
     Active Substance: BENDAMUSTINE HYDROCHLORIDE
     Route: 042
     Dates: start: 20100429, end: 20100430
  4. NYSTATIN. [Concomitant]
     Active Substance: NYSTATIN
     Indication: PROPHYLAXIS
     Dosage: 3 DOSAGE FORMS DAILY;
     Route: 048
     Dates: start: 20100708
  5. SUCRALFATE. [Concomitant]
     Active Substance: SUCRALFATE
     Indication: GASTROOESOPHAGEAL REFLUX DISEASE
     Dosage: 2 DOSAGE FORMS DAILY; TWICE DAILY / 2 / GEL/ 1 DAY
     Route: 048
     Dates: start: 20100608
  6. TREANDA [Suspect]
     Active Substance: BENDAMUSTINE HYDROCHLORIDE
     Route: 042
     Dates: start: 20100624, end: 20100625
  7. CATAFLAM [Concomitant]
     Active Substance: DICLOFENAC POTASSIUM
     Indication: ANALGESIC THERAPY
     Dosage: 25 MILLIGRAM DAILY; 3/ FORMULATION UNKNOWN / 25 MG / 1 DAY
     Route: 048
     Dates: start: 20100708
  8. TREANDA [Suspect]
     Active Substance: BENDAMUSTINE HYDROCHLORIDE
     Route: 042
     Dates: start: 20100527, end: 20100528
  9. MEGEST [Concomitant]
     Indication: DECREASED APPETITE
     Dosage: 120 MILLIGRAM DAILY; 1/ ORAL SUSPENSION / 120 MG / 1 DAY
     Route: 048
     Dates: start: 20100623

REACTIONS (4)
  - Febrile neutropenia [Fatal]
  - Septic shock [Fatal]
  - Anaemia [Unknown]
  - Depressed level of consciousness [Fatal]

NARRATIVE: CASE EVENT DATE: 20100708
